FAERS Safety Report 8300295-8 (Version None)
Quarter: 2012Q2

REPORT INFORMATION
  Report Type: 
  Country: None (occurrence: None)
  Receive Date: 20120420
  Receipt Date: 20120417
  Transmission Date: 20120825
  Serious: Yes (Other)
  Sender: FDA-Public Use
  Company Number: JP-PFIZER INC-2012085591

PATIENT
  Age: 81 Year
  Sex: Male

DRUGS (2)
  1. SUTENT [Suspect]
     Dosage: UNK
     Route: 048
  2. SUTENT [Suspect]
     Indication: GASTROINTESTINAL STROMAL TUMOUR
     Dosage: 25 MG, FREQUENCY UNKNOWN
     Route: 048
     Dates: start: 20090101

REACTIONS (2)
  - ANAEMIA [None]
  - BLOOD UREA INCREASED [None]
